FAERS Safety Report 18605357 (Version 1)
Quarter: 2020Q4

REPORT INFORMATION
  Report Type: Spontaneous
  Country: US (occurrence: US)
  Receive Date: 20201211
  Receipt Date: 20201211
  Transmission Date: 20210114
  Serious: Yes (Hospitalization)
  Sender: FDA-Public Use
  Company Number: US-ELI_LILLY_AND_COMPANY-US202012001748

PATIENT
  Sex: Female

DRUGS (1)
  1. TRULICITY [Suspect]
     Active Substance: DULAGLUTIDE
     Indication: DIABETES MELLITUS
     Dosage: 0.75 MG, UNKNOWN
     Route: 058

REACTIONS (9)
  - Migraine [Unknown]
  - Ageusia [Unknown]
  - Nausea [Recovered/Resolved]
  - COVID-19 [Recovering/Resolving]
  - Injection site mass [Unknown]
  - Hyposmia [Unknown]
  - Eating disorder [Unknown]
  - Incorrect dose administered [Unknown]
  - Memory impairment [Recovering/Resolving]
